FAERS Safety Report 25248079 (Version 1)
Quarter: 2025Q2

REPORT INFORMATION
  Report Type: Spontaneous
  Country: US (occurrence: US)
  Receive Date: 20250429
  Receipt Date: 20250429
  Transmission Date: 20250717
  Serious: Yes (Hospitalization)
  Sender: ROCHE
  Company Number: US-ROCHE-10000264121

PATIENT
  Age: 55 Year

DRUGS (15)
  1. TRASTUZUMAB [Suspect]
     Active Substance: TRASTUZUMAB
     Indication: Metastases to lung
     Route: 065
  2. CARBOPLATIN [Suspect]
     Active Substance: CARBOPLATIN
     Indication: Metastases to lung
     Route: 065
  3. PACLITAXEL [Suspect]
     Active Substance: PACLITAXEL
     Indication: Metastases to lung
     Route: 065
  4. DEGARELIX [Concomitant]
     Active Substance: DEGARELIX
  5. LEUPROLIDE [Concomitant]
     Active Substance: LEUPROLIDE
  6. BICALUTAMIDE [Concomitant]
     Active Substance: BICALUTAMIDE
  7. SIPULEUCEL-T [Concomitant]
     Active Substance: SIPULEUCEL-T
  8. DOCETAXEL [Concomitant]
     Active Substance: DOCETAXEL
  9. ENZALUTAMIDE [Concomitant]
     Active Substance: ENZALUTAMIDE
  10. ABIRATERONE ACETATE [Concomitant]
     Active Substance: ABIRATERONE ACETATE
  11. PREDNISONE [Concomitant]
     Active Substance: PREDNISONE
  12. CABAZITAXEL [Concomitant]
     Active Substance: CABAZITAXEL
  13. CISPLATIN [Concomitant]
     Active Substance: CISPLATIN
  14. ETOPOSIDE [Concomitant]
     Active Substance: ETOPOSIDE
  15. VINORELBINE [Concomitant]
     Active Substance: VINORELBINE TARTRATE

REACTIONS (1)
  - Haemoptysis [Unknown]
